FAERS Safety Report 7964130-X (Version None)
Quarter: 2011Q4

REPORT INFORMATION
  Report Type: 
  Country: None (occurrence: None)
  Receive Date: 20111206
  Receipt Date: 20111122
  Transmission Date: 20120403
  Serious: Yes (Death, Hospitalization, Disabling)
  Sender: FDA-Public Use
  Company Number: 1000025216

PATIENT
  Age: 77 Year
  Sex: Male
  Weight: 82.55 kg

DRUGS (7)
  1. BISOPROLOL FUMARATE [Concomitant]
  2. MEMANTINE HYDROCHLORIDE [Suspect]
     Dosage: 5 MG (5 MG, 1 IN 1 D), ORAL
     Route: 048
     Dates: start: 20110929, end: 20110101
  3. MACROGOL (MACROGOL) (MACROGOL) [Concomitant]
  4. RISPERIDONE [Concomitant]
  5. WARFARIN SODIUM [Concomitant]
  6. MEMANTINE HYDROCHLORIDE [Suspect]
     Dosage: 10 MG (10 MG, 1 IN 1 D), ORAL
     Route: 048
     Dates: start: 20110101, end: 20111006
  7. TRAZODONE (TRAZODONE) (TRAZODONE) [Concomitant]

REACTIONS (11)
  - MOBILITY DECREASED [None]
  - INCONTINENCE [None]
  - HYPERSOMNIA [None]
  - CONDITION AGGRAVATED [None]
  - DYSKINESIA [None]
  - APHASIA [None]
  - FLUID INTAKE REDUCED [None]
  - DYSSTASIA [None]
  - CEREBRAL HAEMORRHAGE [None]
  - FEEDING DISORDER [None]
  - CONFUSIONAL STATE [None]
